FAERS Safety Report 5353976-2 (Version None)
Quarter: 2007Q2

REPORT INFORMATION
  Report Type: 
  Country: None (occurrence: None)
  Receive Date: 20070608
  Receipt Date: 20070608
  Transmission Date: 20071010
  Serious: No
  Sender: FDA-Public Use
  Company Number: None

PATIENT
  Age: 26 Year
  Sex: Male
  Weight: 90.7194 kg

DRUGS (1)
  1. LEVAQUIN [Suspect]
     Indication: INFECTION
     Dates: start: 20070416, end: 20070427

REACTIONS (6)
  - DRUG HYPERSENSITIVITY [None]
  - FALL [None]
  - HYPOAESTHESIA [None]
  - IMPAIRED WORK ABILITY [None]
  - JOINT SWELLING [None]
  - PAIN [None]
